FAERS Safety Report 5395521-1 (Version None)
Quarter: 2007Q3

REPORT INFORMATION
  Report Type: 
  Country: None (occurrence: None)
  Receive Date: 20070724
  Receipt Date: 20070622
  Transmission Date: 20080115
  Serious: Yes (Disabling)
  Sender: FDA-Public Use
  Company Number: US-GILEAD-2007-0012539

PATIENT
  Sex: Male

DRUGS (5)
  1. TRUVADA [Suspect]
  2. REYATAZ [Concomitant]
  3. RITONAVIR [Concomitant]
  4. OXANDROLONE [Concomitant]
  5. TESTOSTERONE [Concomitant]

REACTIONS (1)
  - MUSCLE RUPTURE [None]
